FAERS Safety Report 6160854-8 (Version None)
Quarter: 2009Q2

REPORT INFORMATION
  Report Type: 
  Country: None (occurrence: None)
  Receive Date: 20090420
  Receipt Date: 20090415
  Transmission Date: 20091009
  Serious: Yes (Hospitalization)
  Sender: FDA-Public Use
  Company Number: US-GILEAD-2009-0021504

PATIENT
  Sex: Female
  Weight: 77.18 kg

DRUGS (17)
  1. LETAIRIS [Suspect]
     Indication: PULMONARY ARTERIAL HYPERTENSION
     Route: 048
     Dates: start: 20080701
  2. LASIX [Concomitant]
  3. CORGARD [Concomitant]
  4. TRAZODONE HCL [Concomitant]
  5. PROTONIX [Concomitant]
  6. ULTRAM [Concomitant]
  7. FIORICET [Concomitant]
  8. LEXAPRO [Concomitant]
  9. CALCIUM [Concomitant]
  10. MULTI-VITAMIN [Concomitant]
  11. LEVOXYL [Concomitant]
  12. TETRACYCLINE [Concomitant]
  13. GLUCOSAMINE/CHONDROITIN [Concomitant]
  14. CARDI-OMEGA 3 [Concomitant]
  15. WELLBUTRIN [Concomitant]
  16. POTASSIUM CHLORIDE [Concomitant]
  17. TOPAMAX [Concomitant]

REACTIONS (1)
  - HAEMORRHOIDS [None]
